FAERS Safety Report 16065062 (Version 1)
Quarter: 2019Q1

REPORT INFORMATION
  Report Type: Spontaneous
  Country: CA (occurrence: CA)
  Receive Date: 20190313
  Receipt Date: 20190313
  Transmission Date: 20190418
  Serious: Yes (Death)
  Sender: FDA-Public Use
  Company Number: CA-EMCURE PHARMACEUTICALS LTD-2019-EPL-0116

PATIENT

DRUGS (1)
  1. CIDOFOVIR. [Suspect]
     Active Substance: CIDOFOVIR
     Indication: VIRAL HAEMORRHAGIC CYSTITIS
     Dosage: SINGLE DOSE
     Route: 043

REACTIONS (2)
  - Pseudomonal sepsis [Fatal]
  - Off label use [Unknown]
